FAERS Safety Report 12270012 (Version 2)
Quarter: 2016Q2

REPORT INFORMATION
  Report Type: Spontaneous
  Country: BR (occurrence: BR)
  Receive Date: 20160415
  Receipt Date: 20160421
  Transmission Date: 20160815
  Serious: Yes (Hospitalization, Other)
  Sender: FDA-Public Use
  Company Number: BR-PFIZER INC-2016204783

PATIENT
  Age: 70 Year
  Sex: Female
  Weight: 79 kg

DRUGS (6)
  1. SIMVASTATIN. [Concomitant]
     Active Substance: SIMVASTATIN
     Dosage: UNK
  2. GALVUS [Concomitant]
     Active Substance: VILDAGLIPTIN
     Indication: DIABETES MELLITUS
     Dosage: UNK
  3. LOSARTAN. [Concomitant]
     Active Substance: LOSARTAN
     Dosage: UNK
  4. HYDROCHLOROTHIAZIDE. [Concomitant]
     Active Substance: HYDROCHLOROTHIAZIDE
     Dosage: UNK
  5. PURAN [Concomitant]
     Active Substance: LEVOTHYROXINE SODIUM
     Dosage: IN THE MORNING
  6. SUTENT [Suspect]
     Active Substance: SUNITINIB MALATE
     Indication: METASTATIC RENAL CELL CARCINOMA
     Dosage: 50 MG, CYCLE 2 PER 1
     Route: 048
     Dates: start: 20160322, end: 20160329

REACTIONS (11)
  - Pyrexia [Unknown]
  - Weight decreased [Unknown]
  - Gastric disorder [Unknown]
  - Pancreatic mass [Unknown]
  - Infection [Unknown]
  - Blood creatinine increased [Unknown]
  - Dehydration [Unknown]
  - Eating disorder [Unknown]
  - Blood potassium increased [Unknown]
  - Abdominal distension [Unknown]
  - Asthenia [Unknown]

NARRATIVE: CASE EVENT DATE: 201603
